FAERS Safety Report 18388398 (Version 2)
Quarter: 2021Q3

REPORT INFORMATION
  Report Type: Spontaneous
  Country: US (occurrence: US)
  Receive Date: 20201015
  Receipt Date: 20210712
  Transmission Date: 20211014
  Serious: Yes (Other)
  Sender: FDA-Public Use
  Company Number: US-MYLANLABS-2020M1086790

PATIENT
  Age: 60 Year
  Sex: Male

DRUGS (3)
  1. AMLODIPINE/VALSARTAN TEVA [Suspect]
     Active Substance: AMLODIPINE\VALSARTAN
     Dosage: 5?320MG
     Dates: start: 20161110, end: 20180620
  2. VALSARTAN. [Suspect]
     Active Substance: VALSARTAN
     Indication: PRODUCT USED FOR UNKNOWN INDICATION
     Dosage: UNK
  3. AMLODIPINE/VALSARTAN TEVA [Suspect]
     Active Substance: AMLODIPINE\VALSARTAN
     Indication: HYPERTENSION
     Dosage: 5?320MG
     Dates: start: 20151017, end: 20160815

REACTIONS (1)
  - Prostate cancer [Unknown]

NARRATIVE: CASE EVENT DATE: 20180622
